FAERS Safety Report 18174070 (Version 1)
Quarter: 2020Q3

REPORT INFORMATION
  Report Type: Spontaneous
  Country: US (occurrence: US)
  Receive Date: 20200819
  Receipt Date: 20200819
  Transmission Date: 20201103
  Serious: Yes (Life-Threatening, Hospitalization, Disabling)
  Sender: FDA-Public Use
  Company Number: None

PATIENT
  Age: 21 Year
  Sex: Female
  Weight: 68.4 kg

DRUGS (5)
  1. PANTOPRAZOLE [Concomitant]
     Active Substance: PANTOPRAZOLE
  2. DEPO?PROVERA [Suspect]
     Active Substance: MEDROXYPROGESTERONE ACETATE
     Indication: MENSTRUAL DISORDER
     Dosage: ?          QUANTITY:1 INJECTION(S);OTHER FREQUENCY:1 TIME;?
     Route: 030
  3. HEART MONITOR [Concomitant]
  4. ESOMEPRAZOLE. [Concomitant]
     Active Substance: ESOMEPRAZOLE MAGNESIUM
  5. PRILOSEC [Concomitant]
     Active Substance: OMEPRAZOLE MAGNESIUM

REACTIONS (9)
  - Headache [None]
  - Chest pain [None]
  - Anxiety [None]
  - Neck pain [None]
  - Dyspepsia [None]
  - Heart rate increased [None]
  - Pain in extremity [None]
  - Palpitations [None]
  - Back pain [None]

NARRATIVE: CASE EVENT DATE: 20200807
